FAERS Safety Report 5303862-9 (Version None)
Quarter: 2007Q1

REPORT INFORMATION
  Report Type: 
  Country: None (occurrence: None)
  Receive Date: 20070201
  Receipt Date: 20061129
  Transmission Date: 20070707
  Serious: No
  Sender: FDA-Public Use
  Company Number: 2006PV026053

PATIENT
  Age: 45 Year
  Sex: Male
  Weight: 98.8842 kg

DRUGS (2)
  1. BYETTA [Suspect]
     Indication: DIABETES MELLITUS NON-INSULIN-DEPENDENT
     Dosage: 5 MCG;BID;SC
     Route: 058
     Dates: start: 20061118
  2. ACTOS [Concomitant]

REACTIONS (2)
  - CONDITION AGGRAVATED [None]
  - SINUS HEADACHE [None]
